FAERS Safety Report 10333811 (Version 1)
Quarter: 2014Q3

REPORT INFORMATION
  Report Type: Spontaneous
  Country: US (occurrence: US)
  Receive Date: 20140723
  Receipt Date: 20140723
  Transmission Date: 20150326
  Serious: No
  Sender: FDA-Public Use
  Company Number: US-UNITED THERAPEUTICS-UTC-046202

PATIENT
  Sex: Female

DRUGS (1)
  1. REMODULIN [Suspect]
     Active Substance: TREPROSTINIL
     Dosage: 0.02 UG/KG/MIN
     Route: 058
     Dates: start: 20130909

REACTIONS (3)
  - Device malfunction [Unknown]
  - Arthritis [Recovering/Resolving]
  - Infusion site pain [Recovering/Resolving]
